FAERS Safety Report 5466219-6 (Version None)
Quarter: 2007Q3

REPORT INFORMATION
  Report Type: 
  Country: None (occurrence: None)
  Receive Date: 20070924
  Receipt Date: 20070912
  Transmission Date: 20080115
  Serious: Yes (Other)
  Sender: FDA-Public Use
  Company Number: GB-PFIZER INC-2007076432

PATIENT
  Age: 37 Year
  Sex: Female
  Weight: 66 kg

DRUGS (2)
  1. CHAMPIX [Suspect]
     Indication: SMOKING CESSATION THERAPY
     Dosage: TEXT:BID EVERY DAY
     Route: 048
     Dates: start: 20070607, end: 20070614
  2. CO-CODAMOL [Concomitant]

REACTIONS (4)
  - FEELING COLD [None]
  - HYPOTENSION [None]
  - MENORRHAGIA [None]
  - PALLOR [None]
